FAERS Safety Report 18218492 (Version 1)
Quarter: 2020Q3

REPORT INFORMATION
  Report Type: Spontaneous
  Country: US (occurrence: US)
  Receive Date: 20200831
  Receipt Date: 20200831
  Transmission Date: 20201103
  Serious: No
  Sender: FDA-Public Use
  Company Number: None

PATIENT
  Age: 64 Year
  Sex: Female
  Weight: 65.32 kg

DRUGS (1)
  1. DICLOFENAC SODIUM TOPICAL GEL 1% [Suspect]
     Active Substance: DICLOFENAC SODIUM
     Route: 061
     Dates: start: 20200831, end: 20200831

REACTIONS (2)
  - Rash [None]
  - Product odour abnormal [None]

NARRATIVE: CASE EVENT DATE: 20200831
